FAERS Safety Report 6565892-9 (Version None)
Quarter: 2010Q1

REPORT INFORMATION
  Report Type: 
  Country: None (occurrence: None)
  Receive Date: 20100127
  Receipt Date: 20100113
  Transmission Date: 20100710
  Serious: Yes (Death, Life-Threatening, Hospitalization)
  Sender: FDA-Public Use
  Company Number: 2211100-BR-JNJFOC-20090404721

PATIENT
  Age: 35 Year
  Sex: Male
  Weight: 93 kg

DRUGS (3)
  1. DECITABINE (DECITABINE) LYOPHILIZED POWDER [Suspect]
     Indication: MYELODYSPLASTIC SYNDROME
     Dosage: 20 MG/M2, INTRAVENOUS
     Route: 042
     Dates: start: 20080825, end: 20080829
  2. DECITABINE (DECITABINE) LYOPHILIZED POWDER [Suspect]
     Indication: MYELODYSPLASTIC SYNDROME
     Dosage: 20 MG/M2, INTRAVENOUS
     Route: 042
     Dates: start: 20090126, end: 20090130
  3. DECITABINE (DECITABINE) LYOPHILIZED POWDER [Suspect]
     Indication: MYELODYSPLASTIC SYNDROME
     Dosage: 20 MG/M2, INTRAVENOUS
     Route: 042
     Dates: start: 20090323, end: 20090327

REACTIONS (5)
  - FEBRILE NEUTROPENIA [None]
  - GASTROINTESTINAL HAEMORRHAGE [None]
  - PNEUMONIA [None]
  - RESPIRATORY FAILURE [None]
  - VISION BLURRED [None]
